FAERS Safety Report 14067667 (Version 1)
Quarter: 2017Q4

REPORT INFORMATION
  Report Type: Spontaneous
  Country: US (occurrence: US)
  Receive Date: 20171009
  Receipt Date: 20171009
  Transmission Date: 20180321
  Serious: Yes (Other)
  Sender: FDA-Public Use
  Company Number: US-PFIZER INC-2017430635

PATIENT
  Age: 64 Year
  Sex: Male
  Weight: 140.61 kg

DRUGS (1)
  1. ANBESOL MAXIMUM STRENGTH [Suspect]
     Active Substance: BENZOCAINE
     Indication: TOOTHACHE
     Dosage: UNK
     Dates: start: 20171003, end: 20171004

REACTIONS (3)
  - Tooth infection [Not Recovered/Not Resolved]
  - Chemical burn of gastrointestinal tract [Not Recovered/Not Resolved]
  - Swelling face [Not Recovered/Not Resolved]

NARRATIVE: CASE EVENT DATE: 20171003
